FAERS Safety Report 4622374-9 (Version None)
Quarter: 2005Q1

REPORT INFORMATION
  Report Type: 
  Country: None (occurrence: None)
  Receive Date: 20050324
  Receipt Date: 20050324
  Transmission Date: 20050727
  Serious: Yes (Hospitalization)
  Sender: FDA-Public Use
  Company Number: None

PATIENT
  Sex: Male
  Weight: 52.6173 kg

DRUGS (10)
  1. AVASTIN [Suspect]
     Indication: HEPATIC NEOPLASM MALIGNANT
     Dosage: 10 MG/KG IV Q2 WEEKS
     Dates: start: 20050209, end: 20050316
  2. GEMCITABINE [Suspect]
     Indication: HEPATIC NEOPLASM MALIGNANT
     Dosage: 1000MG/M2 IV Q2 WEEKS
     Dates: start: 20050224, end: 20050317
  3. OXALIPLATIN [Suspect]
     Indication: HEPATIC NEOPLASM MALIGNANT
     Dosage: 85 MG/M2 IV Q2 WEEKS
     Dates: start: 20050224, end: 20050317
  4. NADOLOL [Concomitant]
  5. PROTONIX [Concomitant]
  6. ZOFRAN [Concomitant]
  7. COMPAZINE [Concomitant]
  8. POTASSIUM CHLORIDE [Concomitant]
  9. LACTULOSE [Concomitant]
  10. BACLOFEN [Concomitant]

REACTIONS (6)
  - BACTERAEMIA [None]
  - CHILLS [None]
  - DEHYDRATION [None]
  - HYPOTENSION [None]
  - INAPPROPRIATE ANTIDIURETIC HORMONE SECRETION [None]
  - THROMBOCYTOPENIA [None]
